FAERS Safety Report 12632069 (Version 2)
Quarter: 2016Q3

REPORT INFORMATION
  Report Type: Spontaneous
  Country: US (occurrence: US)
  Receive Date: 20160808
  Receipt Date: 20160808
  Transmission Date: 20161109
  Serious: No
  Sender: FDA-Public Use
  Company Number: US-BEH-2016061835

PATIENT
  Sex: Female
  Weight: 93 kg

DRUGS (22)
  1. LEVOFLOXACIN. [Concomitant]
     Active Substance: LEVOFLOXACIN
  2. LISINOPRIL. [Concomitant]
     Active Substance: LISINOPRIL
  3. HIZENTRA [Suspect]
     Active Substance: HUMAN IMMUNOGLOBULIN G
     Route: 058
  4. PULMICORT TURBUHALER [Concomitant]
     Active Substance: BUDESONIDE
  5. HIZENTRA [Suspect]
     Active Substance: HUMAN IMMUNOGLOBULIN G
     Dosage: AS DIRECTED
     Route: 058
     Dates: start: 20110302
  6. LUNESTA [Concomitant]
     Active Substance: ESZOPICLONE
  7. ATORVASTATIN [Concomitant]
     Active Substance: ATORVASTATIN
  8. AMLODIPINE [Concomitant]
     Active Substance: AMLODIPINE BESYLATE
  9. HIZENTRA [Suspect]
     Active Substance: HUMAN IMMUNOGLOBULIN G
     Route: 058
  10. FLONASE [Concomitant]
     Active Substance: FLUTICASONE PROPIONATE
  11. FISH OIL [Concomitant]
     Active Substance: FISH OIL
  12. MELATONIN [Concomitant]
     Active Substance: MELATONIN
  13. EPIPEN [Concomitant]
     Active Substance: EPINEPHRINE
  14. COLACE [Concomitant]
     Active Substance: DOCUSATE SODIUM
  15. DIPHENHYDRAMINE. [Concomitant]
     Active Substance: DIPHENHYDRAMINE
  16. STOOL SOFTNER [Concomitant]
     Active Substance: DOCUSATE SODIUM
  17. VITAMIN B COMPLEX [Concomitant]
     Active Substance: CYANOCOBALAMIN\DEXPANTHENOL\NIACINAMIDE\PYRIDOXINE HYDROCHLORIDE\RIBOFLAVIN 5^-PHOSPHATE SODIUM\THIAMINE HYDROCHLORIDE\VITAMIN B COMPLEX
  18. CALCIUM [Concomitant]
     Active Substance: CALCIUM
  19. AMMONIUM [Concomitant]
  20. HIZENTRA [Suspect]
     Active Substance: HUMAN IMMUNOGLOBULIN G
     Indication: IMMUNODEFICIENCY COMMON VARIABLE
     Route: 058
  21. LIDOCAINE/PRILOCAINE [Concomitant]
     Active Substance: LIDOCAINE\PRILOCAINE
  22. CLOBETASOL [Concomitant]
     Active Substance: CLOBETASOL

REACTIONS (1)
  - Fungal infection [Unknown]
